FAERS Safety Report 5426785-3 (Version None)
Quarter: 2007Q3

REPORT INFORMATION
  Report Type: 
  Country: None (occurrence: None)
  Receive Date: 20070731
  Receipt Date: 20070502
  Transmission Date: 20080115
  Serious: No
  Sender: FDA-Public Use
  Company Number: US200705000905

PATIENT
  Age: 64 Year
  Sex: Female
  Weight: 85.7 kg

DRUGS (4)
  1. BYETTA [Suspect]
     Indication: TYPE 2 DIABETES MELLITUS
     Dosage: 5 UG, EACH MORNING, SUBCUTANEOUS
     Route: 058
     Dates: start: 20070201
  2. GLUCOPHAGE [Concomitant]
  3. AMARYL [Concomitant]
  4. AVANDIA [Concomitant]

REACTIONS (6)
  - ABDOMINAL DISTENSION [None]
  - ALOPECIA [None]
  - BLOOD GLUCOSE INCREASED [None]
  - NAUSEA [None]
  - REMOVAL OF FOREIGN BODY [None]
  - WEIGHT DECREASED [None]
